FAERS Safety Report 12788546 (Version 1)
Quarter: 2016Q3

REPORT INFORMATION
  Report Type: Spontaneous
  Country: FR (occurrence: FR)
  Receive Date: 20160928
  Receipt Date: 20160928
  Transmission Date: 20161109
  Serious: Yes (Other)
  Sender: FDA-Public Use
  Company Number: FR-INDIVIOR LIMITED-INDV-095190-2016

PATIENT
  Age: 47 Year
  Sex: Male

DRUGS (1)
  1. SUBUTEX [Suspect]
     Active Substance: BUPRENORPHINE HYDROCHLORIDE
     Indication: PRODUCT USED FOR UNKNOWN INDICATION
     Dosage: 16MG, DAILY
     Route: 042
     Dates: start: 1994

REACTIONS (3)
  - Intentional product use issue [Not Recovered/Not Resolved]
  - Brachial artery entrapment syndrome [Recovering/Resolving]
  - Skin ulcer [Recovering/Resolving]

NARRATIVE: CASE EVENT DATE: 2014
